FAERS Safety Report 8056860-9 (Version None)
Quarter: 2012Q1

REPORT INFORMATION
  Report Type: 
  Country: None (occurrence: None)
  Receive Date: 20120119
  Receipt Date: 20120118
  Transmission Date: 20120608
  Serious: No
  Sender: FDA-Public Use
  Company Number: US-BAYER-2012-005972

PATIENT
  Sex: Female

DRUGS (1)
  1. GADAVIST [Suspect]

REACTIONS (2)
  - SWOLLEN TONGUE [None]
  - PARAESTHESIA ORAL [None]
